FAERS Safety Report 20963593 (Version 1)
Quarter: 2022Q2

REPORT INFORMATION
  Report Type: Spontaneous
  Country: US (occurrence: None)
  Receive Date: 20220615
  Receipt Date: 20220615
  Transmission Date: 20220720
  Serious: No
  Sender: FDA-Public Use
  Company Number: 2022A217338

PATIENT
  Sex: Female

DRUGS (1)
  1. TAGRISSO [Suspect]
     Active Substance: OSIMERTINIB
     Indication: Non-small cell lung cancer
     Route: 048
     Dates: start: 20210819

REACTIONS (6)
  - COVID-19 [Unknown]
  - Asthenia [Unknown]
  - Joint injury [Unknown]
  - Joint swelling [Unknown]
  - Back disorder [Unknown]
  - Knee deformity [Unknown]
